FAERS Safety Report 23956665 (Version 1)
Quarter: 2024Q2

REPORT INFORMATION
  Report Type: Spontaneous
  Country: AR (occurrence: AR)
  Receive Date: 20240610
  Receipt Date: 20240610
  Transmission Date: 20240716
  Serious: Yes (Other)
  Sender: FDA-Public Use
  Company Number: AR-ABBOTT-2022A-1353564

PATIENT
  Age: 20 Year
  Sex: Male

DRUGS (1)
  1. VALPROATE SODIUM [Suspect]
     Active Substance: VALPROATE SODIUM
     Indication: Product used for unknown indication
     Dosage: VALCOTE 500MG AND VALCOTE 250MG
     Route: 048
     Dates: start: 201812

REACTIONS (3)
  - Seizure [Recovering/Resolving]
  - Anticonvulsant drug level decreased [Unknown]
  - Drug ineffective [Recovering/Resolving]

NARRATIVE: CASE EVENT DATE: 20220926
